FAERS Safety Report 17091598 (Version 1)
Quarter: 2019Q4

REPORT INFORMATION
  Report Type: Spontaneous
  Country: JP (occurrence: JP)
  Receive Date: 20191129
  Receipt Date: 20191129
  Transmission Date: 20200122
  Serious: Yes (Other)
  Sender: FDA-Public Use
  Company Number: JP-FERRINGPH-2019FE07926

PATIENT
  Age: 42 Year
  Sex: Female

DRUGS (3)
  1. PREDNISOLONE. [Concomitant]
     Active Substance: PREDNISOLONE
     Dosage: 40 MG, DAILY
  2. DESMOPRESSIN KYOWA [Suspect]
     Active Substance: DESMOPRESSIN
     Indication: DIABETES INSIPIDUS
     Dosage: 2.5 ?G, DAILY
     Route: 045
  3. INTERFERON ALFA NOS [Interacting]
     Active Substance: INTERFERON ALFA-2A OR INTERFERON ALFA-2B
     Indication: ERDHEIM-CHESTER DISEASE
     Dosage: 3 MILLION UNIT THREE TIMES WEEKLY
     Route: 065

REACTIONS (5)
  - Labelled drug-disease interaction medication error [Not Recovered/Not Resolved]
  - Pulmonary oedema [Unknown]
  - Contraindicated product prescribed [Not Recovered/Not Resolved]
  - Generalised oedema [Unknown]
  - Drug interaction [Unknown]
